FAERS Safety Report 6185013-4 (Version None)
Quarter: 2009Q2

REPORT INFORMATION
  Report Type: 
  Country: None (occurrence: None)
  Receive Date: 20090511
  Receipt Date: 20090331
  Transmission Date: 20091009
  Serious: No
  Sender: FDA-Public Use
  Company Number: A0776190A

PATIENT
  Age: 69 Year
  Sex: Female

DRUGS (17)
  1. CARVEDILOL PHOSPHATE [Suspect]
     Indication: HYPERTENSION
     Route: 048
     Dates: start: 20071201, end: 20080401
  2. COREG CR [Suspect]
     Indication: HYPERTENSION
     Route: 048
     Dates: start: 20080401
  3. ACIPHEX [Concomitant]
  4. CARDIZEM [Concomitant]
  5. GEMFIBROZIL [Concomitant]
  6. HYDROCHLOROTHIAZIDE [Concomitant]
  7. INSPRA [Concomitant]
  8. LIDODERM [Concomitant]
  9. LISINOPRIL [Concomitant]
  10. ZESTRIL [Concomitant]
  11. METFORMIN HCL [Concomitant]
  12. SYNTHROID [Concomitant]
  13. UNKNOWN [Concomitant]
  14. XANAX [Concomitant]
  15. ZETIA [Concomitant]
  16. ASPIRIN [Concomitant]
  17. LACTULOSE [Concomitant]

REACTIONS (2)
  - ALOPECIA [None]
  - DRY EYE [None]
